FAERS Safety Report 6757772-0 (Version None)
Quarter: 2010Q2

REPORT INFORMATION
  Report Type: 
  Country: None (occurrence: None)
  Receive Date: 20100607
  Receipt Date: 20100526
  Transmission Date: 20101027
  Serious: Yes (Hospitalization, Other)
  Sender: FDA-Public Use
  Company Number: DE-BAYER-201025701GPV

PATIENT
  Age: 48 Year
  Sex: Female
  Weight: 75 kg

DRUGS (4)
  1. BETAFERON [Suspect]
     Indication: MULTIPLE SCLEROSIS
     Dates: start: 20100121, end: 20100128
  2. TOLPERISON [Concomitant]
     Indication: MUSCLE SPASMS
  3. AMITRIPTYLINE HCL [Concomitant]
     Indication: DYSAESTHESIA
  4. VITAMIN B-12 [Concomitant]
     Indication: VITAMIN B12 DEFICIENCY

REACTIONS (3)
  - ANGINA PECTORIS [None]
  - DYSPNOEA [None]
  - MYOCARDITIS [None]
